FAERS Safety Report 24141059 (Version 1)
Quarter: 2024Q3

REPORT INFORMATION
  Report Type: Report from Study
  Country: US (occurrence: US)
  Receive Date: 20240726
  Receipt Date: 20240726
  Transmission Date: 20241016
  Serious: Yes (Hospitalization, Other)
  Sender: MYLAN
  Company Number: US-MYLANLABS-2024M1058182

PATIENT
  Sex: Male
  Weight: 70.1 kg

DRUGS (14)
  1. CLOZAPINE [Suspect]
     Active Substance: CLOZAPINE
     Indication: Aggression
     Dosage: 325 MILLIGRAM (100MG/125MG/100MG)
     Route: 065
     Dates: end: 202405
  2. CLOZAPINE [Suspect]
     Active Substance: CLOZAPINE
     Indication: Autism spectrum disorder
  3. CLOZAPINE [Suspect]
     Active Substance: CLOZAPINE
     Indication: Intellectual disability
  4. VALPROIC ACID [Suspect]
     Active Substance: VALPROIC ACID
     Indication: Aggression
     Dosage: 800 MILLIGRAM, BID (DISCHARGE DOSE)
     Route: 065
  5. VALPROIC ACID [Suspect]
     Active Substance: VALPROIC ACID
     Indication: Autism spectrum disorder
  6. VALPROIC ACID [Suspect]
     Active Substance: VALPROIC ACID
     Indication: Intellectual disability
  7. VIMPAT [Suspect]
     Active Substance: LACOSAMIDE
     Indication: Aggression
     Dosage: 80 MILLIGRAM, BID (DISCHARGE DOSE)
     Route: 065
  8. VIMPAT [Suspect]
     Active Substance: LACOSAMIDE
     Indication: Autism spectrum disorder
  9. VIMPAT [Suspect]
     Active Substance: LACOSAMIDE
     Indication: Intellectual disability
  10. ATIVAN [Concomitant]
     Active Substance: LORAZEPAM
     Dosage: 2 MILLIGRAM, BID (PRN)
     Route: 065
  11. RISPERDAL [Concomitant]
     Active Substance: RISPERIDONE
     Dosage: 2 MILLIGRAM, TID (PRN)
     Route: 065
  12. TRAZODONE [Concomitant]
     Active Substance: TRAZODONE HYDROCHLORIDE
     Dosage: 80 MILLIGRAM QMS
     Route: 065
  13. METFORMIN [Concomitant]
     Active Substance: METFORMIN HYDROCHLORIDE
     Dosage: 500 MILLIGRAM QMS
     Route: 065
  14. MIDAZOLAM [Concomitant]
     Active Substance: MIDAZOLAM
     Dosage: UNK (PRN)
     Route: 045

REACTIONS (4)
  - Seizure [Unknown]
  - Status epilepticus [Unknown]
  - Withdrawal catatonia [Unknown]
  - Off label use [Recovered/Resolved]
